FAERS Safety Report 6437711-2 (Version None)
Quarter: 2009Q4

REPORT INFORMATION
  Report Type: 
  Country: None (occurrence: None)
  Receive Date: 20091112
  Receipt Date: 20091028
  Transmission Date: 20100525
  Serious: Yes (Hospitalization, Disabling)
  Sender: FDA-Public Use
  Company Number: BR-PFIZER INC-2009288123

PATIENT
  Age: 40 Year
  Sex: Female
  Weight: 62 kg

DRUGS (9)
  1. CELEBRA [Suspect]
     Indication: APHTHOUS STOMATITIS
     Dosage: 200 MG, 2X/DAY
     Route: 048
     Dates: start: 20091002
  2. CELEBRA [Suspect]
     Indication: MOUTH INJURY
  3. METICORTEN [Concomitant]
     Dosage: UNK
  4. PARACETAMOL [Concomitant]
     Dosage: UNK
  5. TRAMAL [Concomitant]
     Dosage: UNK
  6. DERMACERIUM [Concomitant]
     Dosage: UNK
  7. PRED FORTE [Concomitant]
     Dosage: UNK
  8. BERLISON [Concomitant]
     Dosage: UNK
  9. HEXOMEDINE ^RHODIA^ [Concomitant]
     Dosage: UNK

REACTIONS (10)
  - ARTHRALGIA [None]
  - ASTHENIA [None]
  - DYSPNOEA [None]
  - EAR INJURY [None]
  - HYPERSENSITIVITY [None]
  - PAIN IN EXTREMITY [None]
  - PURULENCE [None]
  - SKIN EXFOLIATION [None]
  - STEVENS-JOHNSON SYNDROME [None]
  - SWOLLEN TONGUE [None]
